FAERS Safety Report 8590630-8 (Version None)
Quarter: 2012Q3

REPORT INFORMATION
  Report Type: 
  Country: None (occurrence: None)
  Receive Date: 20120813
  Receipt Date: 20120808
  Transmission Date: 20120928
  Serious: No
  Sender: FDA-Public Use
  Company Number: US-PFIZER INC-2012194146

PATIENT
  Age: 75 Year
  Sex: Female

DRUGS (1)
  1. ADVIL [Suspect]
     Dosage: TWO CAPSULES AT EVERY 6 HOURS
     Route: 048
     Dates: start: 20120701

REACTIONS (1)
  - BLOOD PRESSURE INCREASED [None]
